FAERS Safety Report 25518708 (Version 5)
Quarter: 2025Q3

REPORT INFORMATION
  Report Type: Report from Study
  Country: US (occurrence: US)
  Receive Date: 20250704
  Receipt Date: 20250825
  Transmission Date: 20251021
  Serious: Yes (Other)
  Sender: SUNOVION
  Company Number: US-SUMITOMO PHARMA SWITZERLAND GMBH-2025SPA007390

PATIENT
  Age: 65 Year
  Sex: Male

DRUGS (6)
  1. ORGOVYX [Suspect]
     Active Substance: RELUGOLIX
     Indication: Prostate cancer
     Dosage: 360 MG, SINGLE
     Route: 048
     Dates: start: 202505, end: 202505
  2. ORGOVYX [Suspect]
     Active Substance: RELUGOLIX
     Dosage: 120 MG, QD
     Route: 048
     Dates: start: 202505
  3. PROSCAR [Suspect]
     Active Substance: FINASTERIDE
     Indication: Product used for unknown indication
  4. RAPAFLO [Suspect]
     Active Substance: SILODOSIN
     Indication: Product used for unknown indication
  5. GABAPENTIN [Concomitant]
     Active Substance: GABAPENTIN
  6. TADALAFIL [Concomitant]
     Active Substance: TADALAFIL

REACTIONS (10)
  - Loss of consciousness [Unknown]
  - Genitourinary symptom [Not Recovered/Not Resolved]
  - Heat exhaustion [Unknown]
  - Sciatica [Unknown]
  - Gastrointestinal motility disorder [Unknown]
  - Constipation [Unknown]
  - Diarrhoea [Unknown]
  - Fatigue [Unknown]
  - Hot flush [Unknown]
  - Bone pain [Unknown]

NARRATIVE: CASE EVENT DATE: 20250602
